FAERS Safety Report 21387990 (Version 1)
Quarter: 2022Q3

REPORT INFORMATION
  Report Type: Spontaneous
  Country: FR (occurrence: FR)
  Receive Date: 20220928
  Receipt Date: 20220928
  Transmission Date: 20221027
  Serious: Yes (Hospitalization)
  Sender: FDA-Public Use
  Company Number: None

PATIENT
  Age: 61 Year
  Sex: Male
  Weight: 82 kg

DRUGS (5)
  1. MYFORTIC [Suspect]
     Active Substance: MYCOPHENOLATE SODIUM
     Indication: Renal transplant
     Dosage: 720 MG, QD
     Route: 048
     Dates: end: 20220705
  2. TACROLIMUS [Suspect]
     Active Substance: TACROLIMUS
     Indication: Renal transplant
     Dosage: 1.5 MG, QD
     Route: 048
     Dates: end: 20220604
  3. LINEZOLID [Suspect]
     Active Substance: LINEZOLID
     Indication: Bronchopneumopathy
     Dosage: 1200 MG, QD
     Route: 048
     Dates: start: 20220515, end: 20220604
  4. FLUINDIONE [Suspect]
     Active Substance: FLUINDIONE
     Indication: Atrial fibrillation
     Dosage: UNK
     Route: 048
     Dates: end: 20220604
  5. PIPERACILLIN SODIUM\TAZOBACTAM SODIUM [Suspect]
     Active Substance: PIPERACILLIN SODIUM\TAZOBACTAM SODIUM
     Indication: Bronchopneumopathy
     Dosage: 12 G, QD
     Route: 042
     Dates: start: 20220515

REACTIONS (1)
  - Pancytopenia [Recovered/Resolved]

NARRATIVE: CASE EVENT DATE: 20220602
